FAERS Safety Report 7271875 (Version 5)
Quarter: 2014Q1

REPORT INFORMATION
  Report Type: Report from Study
  Country: MX (occurrence: MX)
  Receive Date: 20100205
  Receipt Date: 20140318
  Transmission Date: 20141002
  Serious: Yes (Other)
  Sender: FDA-Public Use
  Company Number: PHHY2010MX04920

PATIENT
  Age: 80 Year
  Sex: Male

DRUGS (5)
  1. EXELON PATCH [Suspect]
     Indication: DEMENTIA ALZHEIMER^S TYPE
     Dosage: 1 DF, QD, 1 PATCH (5 CM2) PER DAY
     Route: 062
     Dates: start: 200910
  2. STALEVO [Suspect]
     Indication: TREMOR
     Dosage: UNK UKN, UNK
  3. LEXAPRO [Suspect]
     Dosage: UNK UKN, UNK
     Dates: start: 2005
  4. NORVAS [Concomitant]
     Dosage: UNK UKN, UNK
     Dates: start: 200908
  5. SPIRIVA [Concomitant]
     Dosage: UNK UKN, UNK

REACTIONS (7)
  - Haemarthrosis [Recovered/Resolved]
  - Vertigo [Recovered/Resolved]
  - Bone contusion [Recovered/Resolved]
  - Fall [Recovered/Resolved]
  - Embolism [Recovered/Resolved]
  - Dyspnoea [Not Recovered/Not Resolved]
  - Groin pain [Recovered/Resolved]
